FAERS Safety Report 8267546-X (Version None)
Quarter: 2012Q2

REPORT INFORMATION
  Report Type: 
  Country: None (occurrence: None)
  Receive Date: 20120405
  Receipt Date: 20120405
  Transmission Date: 20120825
  Serious: Yes (Hospitalization)
  Sender: FDA-Public Use
  Company Number: None

PATIENT
  Sex: Female
  Weight: 71.5 kg

DRUGS (2)
  1. CYTARABINE [Suspect]
     Dosage: 1260 MG
     Dates: end: 20120312
  2. IDARUBICIN HCL [Suspect]
     Dosage: 66 MG
     Dates: end: 20120307

REACTIONS (3)
  - BODY TEMPERATURE INCREASED [None]
  - PNEUMONIA [None]
  - CHEST PAIN [None]
